FAERS Safety Report 4342011-0 (Version None)
Quarter: 2004Q2

REPORT INFORMATION
  Report Type: 
  Country: None (occurrence: None)
  Receive Date: 20040415
  Receipt Date: 20040330
  Transmission Date: 20050107
  Serious: Yes (Other)
  Sender: FDA-Public Use
  Company Number: USA031152497

PATIENT
  Age: 64 Year
  Sex: Female

DRUGS (5)
  1. FORTEO [Suspect]
     Indication: OSTEOPOROSIS
     Dosage: 20 UG/1 DAY
     Dates: start: 20031111
  2. PREDNISONE [Concomitant]
  3. FIORICET [Concomitant]
  4. MS CONTIN [Concomitant]
  5. SYNTHROID [Concomitant]

REACTIONS (9)
  - ARTHRALGIA [None]
  - DIZZINESS [None]
  - EYE PRURITUS [None]
  - JOINT CREPITATION [None]
  - JOINT EFFUSION [None]
  - NASOPHARYNGITIS [None]
  - NAUSEA [None]
  - TENDON RUPTURE [None]
  - URTICARIA [None]
